FAERS Safety Report 7432876-8 (Version None)
Quarter: 2011Q2

REPORT INFORMATION
  Report Type: 
  Country: None (occurrence: None)
  Receive Date: 20110422
  Receipt Date: 20110413
  Transmission Date: 20111010
  Serious: Yes (Other)
  Sender: FDA-Public Use
  Company Number: JP-ASTRAZENECA-2011SE20092

PATIENT
  Age: 63 Year
  Sex: Male
  Weight: 80 kg

DRUGS (10)
  1. CRESTOR [Suspect]
     Indication: HYPERLIPIDAEMIA
     Route: 048
     Dates: start: 20100511, end: 20100515
  2. PLAVIX [Concomitant]
     Dosage: DOSE UNKNOWN
     Route: 048
  3. INOVAN [Concomitant]
     Dosage: DOSE UNKNOWN
     Route: 041
  4. NOR-ADRENALIN [Concomitant]
     Dosage: DOSE UNKNOWN
     Route: 065
  5. DOBUPUM [Concomitant]
     Dosage: DOSE UNKNOWN
     Route: 041
  6. RISPERDAL [Concomitant]
     Dosage: DOSE UNKNOWN
     Route: 048
     Dates: end: 20100517
  7. ASPIRIN [Concomitant]
     Dosage: DOSE UNKNOWN
     Route: 048
  8. HEPARIN CALCIUM [Concomitant]
     Dosage: DOSE UNKNOWN
     Route: 058
  9. ACINON [Concomitant]
     Dosage: DOSE UNKNOWN
     Route: 048
  10. HEPARIN [Concomitant]
     Dosage: DOSE UNKNOWN
     Route: 065

REACTIONS (1)
  - RHABDOMYOLYSIS [None]
